FAERS Safety Report 5457714-4 (Version None)
Quarter: 2007Q3

REPORT INFORMATION
  Report Type: 
  Country: None (occurrence: None)
  Receive Date: 20070917
  Receipt Date: 20070905
  Transmission Date: 20080115
  Serious: Yes (Hospitalization, Other)
  Sender: FDA-Public Use
  Company Number: 018053

PATIENT
  Age: 80 Year
  Sex: Female
  Weight: 79.8 kg

DRUGS (13)
  1. WARFARIN SODIUM [Suspect]
     Indication: ATRIAL FIBRILLATION
     Dosage: ORAL
     Route: 048
     Dates: start: 20030101
  2. VERAPAMIL [Concomitant]
  3. DIGOXIN [Concomitant]
  4. PROTONIX [Concomitant]
  5. FUROSEMIDE [Concomitant]
  6. ARICEPT [Concomitant]
  7. LEXAPRO [Concomitant]
  8. LORAZEPAM [Concomitant]
  9. LIPITOR [Concomitant]
  10. MAGNESIUM (MAGNESIUM) [Concomitant]
  11. BELLADONNA ALKALOIDS (BELLADONNA ALKALOIDS) [Concomitant]
  12. NAMENDA [Concomitant]
  13. SPIRONOLACTONE [Concomitant]

REACTIONS (4)
  - COGNITIVE DISORDER [None]
  - CONFUSIONAL STATE [None]
  - MEMORY IMPAIRMENT [None]
  - PANCREATITIS ACUTE [None]
